FAERS Safety Report 21783317 (Version 1)
Quarter: 2022Q4

REPORT INFORMATION
  Report Type: Spontaneous
  Country: US (occurrence: US)
  Receive Date: 20221227
  Receipt Date: 20221227
  Transmission Date: 20230113
  Serious: No
  Sender: FDA-Public Use
  Company Number: US-PFIZER INC-202201388881

PATIENT
  Age: 88 Year
  Sex: Male

DRUGS (1)
  1. PAXLOVID [Suspect]
     Active Substance: NIRMATRELVIR\RITONAVIR
     Indication: COVID-19 treatment
     Dosage: THREE SESSIONS OF PAXLOVID (9 PILLS IN TOTAL IN 1.5 DAY)

REACTIONS (2)
  - Pollakiuria [Unknown]
  - Prostatic disorder [Unknown]
